FAERS Safety Report 8493211-X (Version None)
Quarter: 2012Q3

REPORT INFORMATION
  Report Type: 
  Country: None (occurrence: None)
  Receive Date: 20120706
  Receipt Date: 20120704
  Transmission Date: 20120928
  Serious: Yes (Death, Hospitalization)
  Sender: FDA-Public Use
  Company Number: CA-B.I. PHARMACEUTICALS,INC./RIDGEFIELD-2012-CN-00292CN

PATIENT
  Age: 81 Year
  Sex: Female
  Weight: 63.5 kg

DRUGS (7)
  1. PERINDOPRIL ERBUMINE [Concomitant]
     Dosage: 2 MG
     Route: 048
  2. PRADAXA [Suspect]
     Indication: ANTICOAGULANT THERAPY
  3. PLAVIX [Concomitant]
     Dosage: 75 MG
     Route: 048
  4. PRADAXA [Suspect]
     Indication: ATRIAL FIBRILLATION
     Dosage: 220 MG
     Route: 048
     Dates: start: 20110101, end: 20110101
  5. CARVEDILOL [Concomitant]
     Dosage: 25 MG
     Route: 048
  6. ASPIRIN [Concomitant]
     Dosage: 81 MG
     Route: 048
  7. RABEPRAZOLE SODIUM [Concomitant]
     Dosage: 20 MG
     Route: 048

REACTIONS (2)
  - CEREBRAL HAEMORRHAGE [None]
  - GASTROINTESTINAL HAEMORRHAGE [None]
